FAERS Safety Report 7508313-1 (Version None)
Quarter: 2011Q2

REPORT INFORMATION
  Report Type: 
  Country: None (occurrence: None)
  Receive Date: 20110527
  Receipt Date: 20110519
  Transmission Date: 20111010
  Serious: Yes (Hospitalization)
  Sender: FDA-Public Use
  Company Number: BR-MEDIMMUNE-MEDI-0013231

PATIENT
  Sex: Male
  Weight: 6.54 kg

DRUGS (3)
  1. FUROSEMIDE [Concomitant]
     Route: 048
     Dates: start: 20100801
  2. SYNAGIS [Suspect]
     Route: 030
     Dates: start: 20100501, end: 20100501
  3. SYNAGIS [Suspect]
     Indication: BRONCHOPULMONARY DYSPLASIA
     Route: 030
     Dates: start: 20100701, end: 20110401

REACTIONS (6)
  - BRONCHIOLITIS [None]
  - PNEUMONIA [None]
  - COUGH [None]
  - INFLUENZA [None]
  - RESPIRATORY FAILURE [None]
  - FATIGUE [None]
